FAERS Safety Report 22059823 (Version 1)
Quarter: 2023Q1

REPORT INFORMATION
  Report Type: Report from Study
  Country: MX (occurrence: MX)
  Receive Date: 20230303
  Receipt Date: 20230303
  Transmission Date: 20230417
  Serious: Yes (Hospitalization)
  Sender: FDA-Public Use
  Company Number: MX-002147023-NVSC2023MX024021

PATIENT
  Sex: Female
  Weight: 60 kg

DRUGS (3)
  1. EXFORGE HCT [Suspect]
     Active Substance: AMLODIPINE BESYLATE\HYDROCHLOROTHIAZIDE\VALSARTAN
     Indication: Hypertension
     Dosage: 0.5 DOSAGE FORM, QD (10/320/25 MG) APPROXIMATELY 8 YEARS AGO
     Route: 048
     Dates: start: 2015, end: 202301
  2. EXFORGE HCT [Suspect]
     Active Substance: AMLODIPINE BESYLATE\HYDROCHLOROTHIAZIDE\VALSARTAN
     Dosage: UNK (A QUARTER (10/320/25 MG) IN THE MORNING
     Route: 048
     Dates: start: 202301
  3. FISH OIL [Concomitant]
     Active Substance: FISH OIL
     Indication: Hypovitaminosis
     Dosage: 1 DOSAGE FORM, QD
     Route: 048

REACTIONS (5)
  - Bladder prolapse [Recovered/Resolved]
  - Weight decreased [Unknown]
  - Uterine enlargement [Recovered/Resolved]
  - Wrong technique in product usage process [Not Recovered/Not Resolved]
  - Off label use [Not Recovered/Not Resolved]

NARRATIVE: CASE EVENT DATE: 20150101
